FAERS Safety Report 7289434-8 (Version None)
Quarter: 2011Q1

REPORT INFORMATION
  Report Type: 
  Country: None (occurrence: None)
  Receive Date: 20110211
  Receipt Date: 20110203
  Transmission Date: 20110831
  Serious: Yes (Other)
  Sender: FDA-Public Use
  Company Number: US-BAYER-2011-011653

PATIENT
  Age: 53 Year
  Sex: Female

DRUGS (4)
  1. SINGULAIR [Concomitant]
  2. AVELOX [Suspect]
     Indication: LUNG INFECTION
     Dosage: 400 MG, QD
     Route: 048
     Dates: start: 20110203
  3. PREDNISONE [Concomitant]
  4. ENALAPRIL MALEATE [Concomitant]

REACTIONS (6)
  - PHARYNGEAL OEDEMA [None]
  - LIP SWELLING [None]
  - URTICARIA [None]
  - SWELLING FACE [None]
  - PRURITUS [None]
  - HYPERSENSITIVITY [None]
